FAERS Safety Report 15835496 (Version 2)
Quarter: 2019Q1

REPORT INFORMATION
  Report Type: Report from Study
  Country: BR (occurrence: BR)
  Receive Date: 20190117
  Receipt Date: 20190329
  Transmission Date: 20190417
  Serious: Yes (Other)
  Sender: FDA-Public Use
  Company Number: BR-ROCHE-1160717

PATIENT
  Age: 73 Year
  Sex: Female
  Weight: 62 kg

DRUGS (10)
  1. HYDROCHLOROTHIAZIDE. [Concomitant]
     Active Substance: HYDROCHLOROTHIAZIDE
  2. ACTEMRA [Suspect]
     Active Substance: TOCILIZUMAB
     Indication: RHEUMATOID ARTHRITIS
     Dosage: RECEIVED INFUSIONS FROM DEC/2011 TO APR/2012 AND  FROM JUL/2012 TO APR/2014 AND FROM JUN/2014 TO NO
     Route: 042
     Dates: start: 20111201
  3. PIASCLEDINE [Concomitant]
     Active Substance: AVOCADO OIL\SOYBEAN OIL
     Indication: OSTEOARTHRITIS
  4. HIGROTON [Concomitant]
     Active Substance: CHLORTHALIDONE
     Route: 065
  5. OMEPRAZOLE. [Concomitant]
     Active Substance: OMEPRAZOLE
  6. AMLODIPINE [Concomitant]
     Active Substance: AMLODIPINE BESYLATE
  7. AVOCADO. [Concomitant]
     Active Substance: AVOCADO
  8. ATACAND [Concomitant]
     Active Substance: CANDESARTAN CILEXETIL
     Indication: HYPERTENSION
     Route: 065
  9. PROTOS (BRAZIL) [Concomitant]
     Active Substance: STRONTIUM RANELATE
     Route: 065
  10. AMIODARONE HYDROCHLORIDE. [Concomitant]
     Active Substance: AMIODARONE HYDROCHLORIDE
     Indication: HYPERTENSION

REACTIONS (4)
  - Influenza [Unknown]
  - Therapeutic response decreased [Unknown]
  - Cataract [Recovering/Resolving]
  - Arthralgia [Recovering/Resolving]

NARRATIVE: CASE EVENT DATE: 201204
